FAERS Safety Report 8489873-3 (Version None)
Quarter: 2012Q3

REPORT INFORMATION
  Report Type: 
  Country: None (occurrence: None)
  Receive Date: 20120705
  Receipt Date: 20120627
  Transmission Date: 20120928
  Serious: Yes (Other)
  Sender: FDA-Public Use
  Company Number: PHHY2012GB055523

PATIENT
  Age: 45 Year
  Sex: Male

DRUGS (2)
  1. METHOTREXATE [Suspect]
     Dosage: 15 MG, WEEKLY
  2. METHOTREXATE [Suspect]
     Dosage: 20 MG, WEEKLY

REACTIONS (3)
  - EYE SWELLING [None]
  - SWELLING FACE [None]
  - EYE PRURITUS [None]
